FAERS Safety Report 9226858 (Version 1)
Quarter: 2013Q1

REPORT INFORMATION
  Report Type: Spontaneous
  Country: US (occurrence: None)
  Receive Date: 20120912
  Receipt Date: 20120912
  Transmission Date: 20140127
  Serious: No
  Sender: FDA-Public Use
  Company Number: 2012SP027236

PATIENT
  Age: 71 Year
  Sex: Male

DRUGS (9)
  1. VICTRELIS [Suspect]
     Indication: HEPATITIS C
     Route: 048
     Dates: start: 201204
  2. VESICARE [Concomitant]
  3. CRESTOR [Concomitant]
  4. NEXIUM [Concomitant]
  5. SYMBICORT [Concomitant]
  6. ZOLOFT [Concomitant]
  7. AMARYL [Concomitant]
  8. RAMIPRIL [Concomitant]
  9. TESTIM [Concomitant]

REACTIONS (2)
  - Depression [None]
  - Fatigue [None]
